FAERS Safety Report 6243998-1 (Version None)
Quarter: 2009Q2

REPORT INFORMATION
  Report Type: 
  Country: None (occurrence: None)
  Receive Date: 20090624
  Receipt Date: 20090612
  Transmission Date: 20091009
  Serious: Yes (Hospitalization, Other)
  Sender: FDA-Public Use
  Company Number: AU-PFIZER INC-2009204196

PATIENT
  Age: 52 Year

DRUGS (5)
  1. CHAMPIX [Suspect]
     Indication: SMOKING CESSATION THERAPY
     Dosage: 1 MG, 1X/DAY
     Route: 048
     Dates: start: 20090225, end: 20090412
  2. PERINDOPRIL ERBUMINE [Concomitant]
     Indication: HYPERTENSION
     Dosage: 10 MG, 1X/DAY
     Route: 048
  3. TENORMIN [Concomitant]
     Indication: HYPERTENSION
     Dosage: 50 MG, 1X/DAY
     Route: 048
  4. ROSUVASTATIN [Concomitant]
  5. ESCITALOPRAM [Concomitant]

REACTIONS (8)
  - BURNING SENSATION [None]
  - CORONARY ARTERY DISEASE [None]
  - FLUSHING [None]
  - HEADACHE [None]
  - HYPOKALAEMIA [None]
  - MYOCARDIAL INFARCTION [None]
  - SINUSITIS [None]
  - VASCULITIC RASH [None]
